FAERS Safety Report 4571727-6 (Version None)
Quarter: 2005Q1

REPORT INFORMATION
  Report Type: 
  Country: None (occurrence: None)
  Receive Date: 20050202
  Receipt Date: 20050202
  Transmission Date: 20050727
  Serious: No
  Sender: FDA-Public Use
  Company Number: None

PATIENT
  Sex: Female
  Weight: 109 kg

DRUGS (2)
  1. ZOMETA [Suspect]
     Dosage: 4MG   Q28DAYS   INTRAVENOU
     Route: 042
     Dates: start: 20020301, end: 20040504
  2. TAXOTERE [Concomitant]

REACTIONS (2)
  - JAW DISORDER [None]
  - OSTEONECROSIS [None]
